FAERS Safety Report 9920085 (Version 1)
Quarter: 2014Q1

REPORT INFORMATION
  Report Type: Spontaneous
  Country: DE (occurrence: DE)
  Receive Date: 20140224
  Receipt Date: 20140224
  Transmission Date: 20141002
  Serious: Yes (Other)
  Sender: FDA-Public Use
  Company Number: PHHY2014DE021861

PATIENT
  Sex: Female

DRUGS (3)
  1. ACLASTA [Suspect]
     Dosage: 5 MG, YEARLY
     Route: 042
     Dates: start: 201312
  2. CALCIUM [Concomitant]
     Dosage: 900 MG, DAILY
  3. VITAMIN D [Concomitant]

REACTIONS (1)
  - Lumbar vertebral fracture [Unknown]
